FAERS Safety Report 17430387 (Version 1)
Quarter: 2020Q1

REPORT INFORMATION
  Report Type: Spontaneous
  Country: US (occurrence: US)
  Receive Date: 20200218
  Receipt Date: 20200218
  Transmission Date: 20200409
  Serious: No
  Sender: FDA-Public Use
  Company Number: US-PFIZER INC-2020069002

PATIENT
  Age: 91 Year
  Sex: Female

DRUGS (1)
  1. CLINDAMYCIN HCL [Suspect]
     Active Substance: CLINDAMYCIN HYDROCHLORIDE
     Indication: TOOTH ABSCESS
     Dosage: 300 MG, 2X/DAY

REACTIONS (3)
  - Vision blurred [Unknown]
  - Off label use [Unknown]
  - Visual impairment [Unknown]
